FAERS Safety Report 24416280 (Version 1)
Quarter: 2024Q4

REPORT INFORMATION
  Report Type: Spontaneous
  Country: US (occurrence: None)
  Receive Date: 20241008
  Receipt Date: 20241008
  Transmission Date: 20250114
  Serious: Yes (Hospitalization)
  Sender: Public
  Company Number: None

PATIENT
  Age: 59 Year
  Sex: Male

DRUGS (1)
  1. PEMBROLIZUMAB [Suspect]
     Active Substance: PEMBROLIZUMAB
     Indication: Pancreatic carcinoma metastatic
     Dates: start: 20240417

REACTIONS (4)
  - Adrenocortical insufficiency acute [None]
  - Acute kidney injury [None]
  - Hyperkalaemia [None]
  - Metabolic acidosis [None]

NARRATIVE: CASE EVENT DATE: 20240616
